FAERS Safety Report 25259836 (Version 4)
Quarter: 2025Q3

REPORT INFORMATION
  Report Type: Spontaneous
  Country: MX (occurrence: MX)
  Receive Date: 20250501
  Receipt Date: 20250709
  Transmission Date: 20251021
  Serious: Yes (Other)
  Sender: UNITED THERAPEUTICS
  Company Number: MX-UNITED THERAPEUTICS-UNT-2025-012501

PATIENT
  Age: 76 Year
  Weight: 53.497 kg

DRUGS (12)
  1. REMODULIN [Suspect]
     Active Substance: TREPROSTINIL
     Indication: Pulmonary arterial hypertension
  2. REMODULIN [Suspect]
     Active Substance: TREPROSTINIL
  3. REMODULIN [Suspect]
     Active Substance: TREPROSTINIL
  4. PREDNISONE [Suspect]
     Active Substance: PREDNISONE
     Indication: Rheumatoid arthritis
  5. PREDNISONE [Suspect]
     Active Substance: PREDNISONE
  6. LEFLUNOMIDE [Suspect]
     Active Substance: LEFLUNOMIDE
     Indication: Product used for unknown indication
  7. METHIMAZOLE [Suspect]
     Active Substance: METHIMAZOLE
     Indication: Product used for unknown indication
  8. METHIMAZOLE [Suspect]
     Active Substance: METHIMAZOLE
  9. VOLTAREN [Concomitant]
     Active Substance: DICLOFENAC SODIUM
     Indication: Rheumatoid arthritis
     Dosage: 0.5 GRAM, QD
  10. VOLTAREN [Concomitant]
     Active Substance: DICLOFENAC SODIUM
     Dosage: 1 GRAM, BID (1 GRAM IN THE MORNING AND 1 GRAM AT NIGHT)
  11. TYLENOL [Concomitant]
     Active Substance: ACETAMINOPHEN
     Indication: Rheumatoid arthritis
  12. SENSODYNE [Concomitant]
     Active Substance: POTASSIUM NITRATE\SODIUM FLUORIDE
     Indication: Pain in jaw

REACTIONS (16)
  - Rheumatoid arthritis [Not Recovered/Not Resolved]
  - Lymphadenopathy [Recovering/Resolving]
  - Periorbital swelling [Recovering/Resolving]
  - Hypothyroidism [Recovering/Resolving]
  - Swelling of eyelid [Recovering/Resolving]
  - Conjunctivitis [Not Recovered/Not Resolved]
  - Eye discharge [Recovering/Resolving]
  - Eye complication associated with device [Not Recovered/Not Resolved]
  - Abdominal distension [Not Recovered/Not Resolved]
  - Gastrointestinal disorder [Not Recovered/Not Resolved]
  - Pain in jaw [Recovering/Resolving]
  - Diarrhoea [Recovering/Resolving]
  - Depressed mood [Not Recovered/Not Resolved]
  - Weight decreased [Recovering/Resolving]
  - Catheter site pain [Recovering/Resolving]
  - Device dislocation [Recovered/Resolved]
